FAERS Safety Report 4768622-6 (Version None)
Quarter: 2005Q3

REPORT INFORMATION
  Report Type: 
  Country: None (occurrence: None)
  Receive Date: 20050914
  Receipt Date: 20050818
  Transmission Date: 20060218
  Serious: Yes (Other)
  Sender: FDA-Public Use
  Company Number: PHEH2005US09255

PATIENT
  Age: 41 Year
  Sex: Female

DRUGS (4)
  1. ZOMETA [Suspect]
     Indication: METASTASES TO BONE
     Dosage: 4 MG, QMO
     Route: 042
     Dates: start: 20030701, end: 20050601
  2. TAXOL [Concomitant]
     Dosage: 175/MCG EVERY THREE WEEKS
     Dates: start: 20030601, end: 20031101
  3. HERCEPTIN [Concomitant]
     Dates: start: 20030601
  4. TAMOXIFEN CITRATE [Concomitant]

REACTIONS (15)
  - ABSCESS JAW [None]
  - ASEPTIC NECROSIS BONE [None]
  - BLOOD CULTURE POSITIVE [None]
  - BONE DISORDER [None]
  - CHILLS [None]
  - COMPUTERISED TOMOGRAM ABNORMAL [None]
  - INCISIONAL DRAINAGE [None]
  - LYMPHADENOPATHY [None]
  - OEDEMA MOUTH [None]
  - ORAL INFECTION [None]
  - PAIN IN JAW [None]
  - PERIOSTITIS [None]
  - PYREXIA [None]
  - SWELLING FACE [None]
  - TOOTH EXTRACTION [None]
